FAERS Safety Report 20770273 (Version 1)
Quarter: 2022Q2

REPORT INFORMATION
  Report Type: Spontaneous
  Country: US (occurrence: US)
  Receive Date: 20220429
  Receipt Date: 20220429
  Transmission Date: 20220721
  Serious: Yes (Other)
  Sender: FDA-Public Use
  Company Number: US-ABBVIE-22K-163-4375286-00

PATIENT
  Age: 68 Year
  Sex: Female
  Weight: 75 kg

DRUGS (9)
  1. IMBRUVICA [Suspect]
     Active Substance: IBRUTINIB
     Indication: B-cell lymphoma
     Route: 048
     Dates: start: 20211229
  2. LOSARTAN [Concomitant]
     Active Substance: LOSARTAN
     Indication: Hypertension
  3. VITAMIN D [Concomitant]
     Active Substance: VITAMIN D NOS
     Indication: Vitamin supplementation
  4. VITAMIN C [Concomitant]
     Active Substance: ASCORBIC ACID
     Indication: Vitamin supplementation
  5. IRON [Concomitant]
     Active Substance: IRON
     Indication: Mineral supplementation
  6. COVID-19 VACCINE [Concomitant]
     Indication: COVID-19 immunisation
     Dosage: 1ST INJECTION
     Route: 030
     Dates: start: 20210117, end: 20210117
  7. COVID-19 VACCINE [Concomitant]
     Dosage: 2ND INJECTION
     Route: 030
     Dates: start: 20210214, end: 20210214
  8. COVID-19 VACCINE [Concomitant]
     Dosage: 3RD INJECTION
     Route: 030
     Dates: start: 20211109, end: 20211109
  9. COVID-19 VACCINE [Concomitant]
     Dosage: 4TH INJECTION
     Route: 030
     Dates: start: 20220421, end: 20220421

REACTIONS (12)
  - Lymphoma [Not Recovered/Not Resolved]
  - Musculoskeletal stiffness [Not Recovered/Not Resolved]
  - Grip strength decreased [Not Recovered/Not Resolved]
  - Muscle contractions involuntary [Not Recovered/Not Resolved]
  - Joint range of motion decreased [Recovered/Resolved]
  - Mobility decreased [Not Recovered/Not Resolved]
  - Weight fluctuation [Not Recovered/Not Resolved]
  - Dry skin [Not Recovered/Not Resolved]
  - Off label use [Unknown]
  - Unevaluable event [Not Recovered/Not Resolved]
  - Dyspepsia [Recovered/Resolved]
  - Asthenia [Not Recovered/Not Resolved]

NARRATIVE: CASE EVENT DATE: 20211201
